FAERS Safety Report 15083907 (Version 3)
Quarter: 2018Q4

REPORT INFORMATION
  Report Type: Report from Study
  Country: US (occurrence: US)
  Receive Date: 20180628
  Receipt Date: 20181127
  Transmission Date: 20190204
  Serious: Yes (Other)
  Sender: FDA-Public Use
  Company Number: US-CLOVIS ONCOLOGY-CLO-2018-000569

PATIENT
  Sex: Female

DRUGS (2)
  1. RUBRACA [Suspect]
     Active Substance: RUCAPARIB CAMSYLATE
     Dosage: 200 MG, BID
     Route: 048
     Dates: start: 20180627, end: 20181109
  2. RUBRACA [Suspect]
     Active Substance: RUCAPARIB CAMSYLATE
     Indication: OVARIAN CANCER
     Dosage: 300 MG, BID
     Route: 048
     Dates: start: 20180507, end: 20180529

REACTIONS (12)
  - Musculoskeletal chest pain [Not Recovered/Not Resolved]
  - Abdominal pain upper [Recovered/Resolved]
  - Dizziness [Not Recovered/Not Resolved]
  - Ovarian cancer recurrent [Not Recovered/Not Resolved]
  - Fatigue [Not Recovered/Not Resolved]
  - Carbohydrate antigen 125 increased [Not Recovered/Not Resolved]
  - Gastrooesophageal reflux disease [Not Recovered/Not Resolved]
  - Vascular wall hypertrophy [Not Recovered/Not Resolved]
  - Platelet count decreased [Recovering/Resolving]
  - Nausea [Recovering/Resolving]
  - Abdominal distension [Not Recovered/Not Resolved]
  - Abdominal pain [Not Recovered/Not Resolved]

NARRATIVE: CASE EVENT DATE: 2018
